FAERS Safety Report 4584692-2 (Version None)
Quarter: 2005Q1

REPORT INFORMATION
  Report Type: 
  Country: None (occurrence: None)
  Receive Date: 20050211
  Receipt Date: 20050131
  Transmission Date: 20050727
  Serious: Yes (Life-Threatening, Hospitalization)
  Sender: FDA-Public Use
  Company Number: US014643

PATIENT
  Age: 21 Year
  Sex: Female

DRUGS (3)
  1. GABITRIL [Suspect]
     Indication: ANXIETY
     Dates: start: 20050127, end: 20050127
  2. XANAX [Concomitant]
  3. CLARITIN [Concomitant]

REACTIONS (9)
  - ALCOHOL USE [None]
  - COMA [None]
  - DYSKINESIA [None]
  - DYSTONIA [None]
  - EYE MOVEMENT DISORDER [None]
  - HYPERTENSION [None]
  - IMPULSIVE BEHAVIOUR [None]
  - INTENTIONAL MISUSE [None]
  - SINUS TACHYCARDIA [None]
